FAERS Safety Report 15543884 (Version 1)
Quarter: 2018Q4

REPORT INFORMATION
  Report Type: Report from Study
  Country: DE (occurrence: DE)
  Receive Date: 20181023
  Receipt Date: 20181023
  Transmission Date: 20190205
  Serious: Yes (Hospitalization)
  Sender: FDA-Public Use
  Company Number: DE-BAUSCH-BL-2018-029322

PATIENT
  Sex: Female

DRUGS (1)
  1. KYNTHEUM [Suspect]
     Active Substance: BRODALUMAB
     Indication: PSORIASIS
     Route: 058
     Dates: start: 20180417, end: 20180823

REACTIONS (1)
  - Psoriasis [Recovered/Resolved]

NARRATIVE: CASE EVENT DATE: 20180831
